FAERS Safety Report 9026749 (Version 2)
Quarter: 2013Q1

REPORT INFORMATION
  Report Type: Spontaneous
  Country: US (occurrence: US)
  Receive Date: 20130123
  Receipt Date: 20130301
  Transmission Date: 20140127
  Serious: Yes (Hospitalization, Other)
  Sender: FDA-Public Use
  Company Number: US-ELI_LILLY_AND_COMPANY-US201301004003

PATIENT
  Age: 63 Year
  Sex: Male
  Weight: 113.38 kg

DRUGS (14)
  1. BYDUREON [Suspect]
     Indication: INSULIN-REQUIRING TYPE 2 DIABETES MELLITUS
     Dosage: 2 MG, WEEKLY (1/W)
     Route: 058
     Dates: start: 20121228, end: 20130124
  2. METFORMIN [Concomitant]
     Indication: INSULIN-REQUIRING TYPE 2 DIABETES MELLITUS
     Dosage: UNK
     Route: 048
  3. METFORMIN [Concomitant]
     Dosage: 1000 MG, BID
  4. NOVOLOG [Concomitant]
     Indication: INSULIN-REQUIRING TYPE 2 DIABETES MELLITUS
     Dosage: UNK
     Route: 058
  5. LEVEMIR [Concomitant]
     Indication: INSULIN-REQUIRING TYPE 2 DIABETES MELLITUS
     Dosage: UNK
     Route: 058
  6. NIASPAN [Concomitant]
     Indication: BLOOD CHOLESTEROL INCREASED
     Dosage: UNK
     Route: 048
  7. PANTOPRAZOLE [Concomitant]
     Indication: GASTROOESOPHAGEAL REFLUX DISEASE
     Dosage: UNK
     Route: 048
  8. PRAVACHOL [Concomitant]
     Indication: BLOOD CHOLESTEROL INCREASED
     Dosage: UNK
     Route: 048
  9. ALTACE [Concomitant]
     Indication: HYPERTENSION
     Dosage: UNK
     Route: 048
  10. WELCHOL [Concomitant]
     Indication: INSULIN-REQUIRING TYPE 2 DIABETES MELLITUS
     Dosage: UNK
     Route: 048
  11. ASPIRIN [Concomitant]
     Indication: GENERAL PHYSICAL CONDITION
     Dosage: 81 MG, QD
     Route: 048
  12. PROTONIX [Concomitant]
     Dosage: 40 MG, QD
  13. RAMIPRIL [Concomitant]
     Dosage: 10 MG, QD
  14. DETROL [Concomitant]
     Dosage: 4 MG, QD

REACTIONS (6)
  - Cardiac failure congestive [Unknown]
  - Vomiting [Unknown]
  - Nausea [Unknown]
  - Fatigue [Unknown]
  - Blood glucose decreased [Unknown]
  - Off label use [Recovered/Resolved]
